FAERS Safety Report 5492427-4 (Version None)
Quarter: 2007Q4

REPORT INFORMATION
  Report Type: 
  Country: None (occurrence: None)
  Receive Date: 20071015
  Receipt Date: 20070801
  Transmission Date: 20080405
  Serious: No
  Sender: FDA-Public Use
  Company Number: 2007SP002710

PATIENT
  Age: 56 Year
  Sex: Female
  Weight: 91.173 kg

DRUGS (10)
  1. LUNESTA [Suspect]
     Indication: INSOMNIA
     Dosage: 3 MG; HS; ORAL, 4 MG; HS; ORAL
     Route: 048
     Dates: start: 20070302, end: 20070719
  2. LUNESTA [Suspect]
     Indication: INSOMNIA
     Dosage: 3 MG; HS; ORAL, 4 MG; HS; ORAL
     Route: 048
     Dates: start: 20070719
  3. ABILIFY [Concomitant]
  4. LORAZEPAM [Concomitant]
  5. SEROQUEL [Concomitant]
  6. SELEGILINE HCL [Concomitant]
  7. GALANTAMINE HYDROBROMIDE [Concomitant]
  8. HYDROBROMIDE [Concomitant]
  9. THYROID TAB [Concomitant]
  10. TIZANIDINE HCL [Concomitant]

REACTIONS (1)
  - INSOMNIA [None]
